FAERS Safety Report 6396919-5 (Version None)
Quarter: 2009Q4

REPORT INFORMATION
  Report Type: 
  Country: None (occurrence: None)
  Receive Date: 20091012
  Receipt Date: 20090930
  Transmission Date: 20100525
  Serious: Yes (Other)
  Sender: FDA-Public Use
  Company Number: DE-NOVOPROD-288356

PATIENT
  Sex: Male
  Weight: 1.19 kg

DRUGS (3)
  1. INSULIN DETEMIR FLEXPEN [Suspect]
     Indication: INSULIN-REQUIRING TYPE 2 DIABETES MELLITUS
     Dosage: 10 U, QD
     Route: 064
     Dates: start: 20080411, end: 20080708
  2. ACTRAPID [Suspect]
     Indication: INSULIN-REQUIRING TYPE 2 DIABETES MELLITUS
     Dosage: UNK, QD
     Route: 064
     Dates: start: 20080911
  3. PROTAPHANE [Suspect]
     Indication: INSULIN-REQUIRING TYPE 2 DIABETES MELLITUS
     Dosage: UNK, QD
     Route: 064
     Dates: start: 20080911

REACTIONS (2)
  - INTENSIVE CARE [None]
  - PREMATURE BABY [None]
